FAERS Safety Report 19899606 (Version 3)
Quarter: 2021Q4

REPORT INFORMATION
  Report Type: Report from Study
  Country: CN (occurrence: CN)
  Receive Date: 20210929
  Receipt Date: 20211019
  Transmission Date: 20220303
  Serious: Yes (Hospitalization)
  Sender: FDA-Public Use
  Company Number: NVSC2021CN214058

PATIENT
  Age: 71 Year
  Sex: Female
  Weight: 65 kg

DRUGS (13)
  1. BENAZEPRIL HYDROCHLORIDE [Suspect]
     Active Substance: BENAZEPRIL HYDROCHLORIDE
     Indication: Cardiac failure
     Dosage: 10 MG, BID
     Route: 048
     Dates: start: 20210902, end: 20210911
  2. BENAZEPRIL HYDROCHLORIDE [Suspect]
     Active Substance: BENAZEPRIL HYDROCHLORIDE
     Dosage: 10 MG, QD
     Route: 048
     Dates: start: 20210912, end: 20210913
  3. BENAZEPRIL HYDROCHLORIDE [Suspect]
     Active Substance: BENAZEPRIL HYDROCHLORIDE
     Dosage: 10 MG, QD
     Route: 048
     Dates: start: 20210916, end: 20210926
  4. BENAZEPRIL HYDROCHLORIDE [Suspect]
     Active Substance: BENAZEPRIL HYDROCHLORIDE
     Dosage: 10 MG, QD
     Route: 048
     Dates: start: 20211005
  5. UNSPECIFIED INGREDIENT [Suspect]
     Active Substance: UNSPECIFIED INGREDIENT
     Indication: Cardiac failure
     Dosage: NO TREATMENT
     Route: 065
  6. ANISODAMINE HYDROBROMIDE [Concomitant]
     Indication: Vertigo
     Dosage: 20 MG, QD
     Route: 048
     Dates: start: 20210912, end: 20210912
  7. FAMOTIDINE [Concomitant]
     Active Substance: FAMOTIDINE
     Indication: Chronic gastritis
     Dosage: 20 MG, BID
     Route: 048
     Dates: start: 20210912, end: 20210916
  8. METOPROLOL SUCCINATE [Concomitant]
     Active Substance: METOPROLOL SUCCINATE
     Indication: Congestive cardiomyopathy
     Dosage: 47.5 MG, QD
     Route: 048
     Dates: start: 20210822
  9. METOPROLOL SUCCINATE [Concomitant]
     Active Substance: METOPROLOL SUCCINATE
     Dosage: 22.75 MG, QD
     Route: 048
     Dates: start: 20210928
  10. SPIRONOLACTONE [Concomitant]
     Active Substance: SPIRONOLACTONE
     Indication: Congestive cardiomyopathy
     Dosage: 20 MG, QD
     Route: 048
     Dates: start: 20210909
  11. FUROSEMIDE [Concomitant]
     Active Substance: FUROSEMIDE
     Indication: Congestive cardiomyopathy
     Dosage: 20 MG, QD
     Route: 048
     Dates: start: 20210912
  12. ILAPRAZOLE [Concomitant]
     Active Substance: ILAPRAZOLE
     Indication: Chronic gastritis
     Dosage: 5 MG, QD
     Route: 048
     Dates: start: 20210924
  13. BETAHISTINE MESILATE [Concomitant]
     Active Substance: BETAHISTINE MESILATE
     Indication: Vertigo
     Dosage: 6 MG, PRN
     Route: 048
     Dates: start: 20210910

REACTIONS (2)
  - Hypotension [Recovering/Resolving]
  - Depression [Not Recovered/Not Resolved]

NARRATIVE: CASE EVENT DATE: 20210912
